FAERS Safety Report 12844325 (Version 1)
Quarter: 2016Q4

REPORT INFORMATION
  Report Type: Spontaneous
  Country: US (occurrence: US)
  Receive Date: 20161012
  Receipt Date: 20161012
  Transmission Date: 20170207
  Serious: No
  Sender: FDA-Public Use
  Company Number: None

PATIENT
  Age: 50 Year
  Sex: Male
  Weight: 82 kg

DRUGS (1)
  1. CEFDINIR. [Suspect]
     Active Substance: CEFDINIR
     Indication: RESPIRATORY TRACT INFECTION
     Route: 048
     Dates: start: 20161010, end: 20161011

REACTIONS (7)
  - Headache [None]
  - Nausea [None]
  - Somnolence [None]
  - Diarrhoea [None]
  - Vomiting [None]
  - Product quality issue [None]
  - Dizziness [None]

NARRATIVE: CASE EVENT DATE: 20161011
